FAERS Safety Report 6862139-0 (Version None)
Quarter: 2010Q3

REPORT INFORMATION
  Report Type: 
  Country: None (occurrence: None)
  Receive Date: 20100719
  Receipt Date: 20100706
  Transmission Date: 20110219
  Serious: Yes (Hospitalization)
  Sender: FDA-Public Use
  Company Number: 235788K09USA

PATIENT
  Age: 51 Year
  Sex: Female
  Weight: 77 kg

DRUGS (7)
  1. REBIF [Suspect]
     Indication: MULTIPLE SCLEROSIS
     Dosage: 44 MCG, 3 IN 1 WK, SUBCUTANEOUS
     Route: 058
     Dates: start: 20030526
  2. PARCOPA [Concomitant]
  3. STALEVO 100 [Concomitant]
  4. PAXIL [Concomitant]
  5. XANAX [Concomitant]
  6. ARTANE [Concomitant]
  7. SINEMET [Concomitant]

REACTIONS (12)
  - ARTHRITIS [None]
  - CLOSTRIDIAL INFECTION [None]
  - CONDITION AGGRAVATED [None]
  - DIARRHOEA [None]
  - DRUG HYPERSENSITIVITY [None]
  - EXOSTOSIS [None]
  - GAIT DISTURBANCE [None]
  - GASTROINTESTINAL DISORDER [None]
  - ILEUS [None]
  - PARKINSON'S DISEASE [None]
  - TENDON DISORDER [None]
  - TENDONITIS [None]
